FAERS Safety Report 6577998-9 (Version None)
Quarter: 2010Q1

REPORT INFORMATION
  Report Type: 
  Country: None (occurrence: None)
  Receive Date: 20100211
  Receipt Date: 20091026
  Transmission Date: 20100710
  Serious: No
  Sender: FDA-Public Use
  Company Number: US-BRISTOL-MYERS SQUIBB COMPANY-14787360

PATIENT
  Age: 65 Year
  Sex: Female
  Weight: 88 kg

DRUGS (12)
  1. IXEMPRA KIT [Suspect]
     Indication: BREAST CANCER
     Route: 042
     Dates: start: 20090921
  2. PRILOSEC [Concomitant]
  3. VICODIN ES [Concomitant]
  4. PYRIDOXINE [Concomitant]
  5. VITAMIN C [Concomitant]
  6. CALCIUM + VITAMIN D [Concomitant]
  7. GLUCOSAMINE [Concomitant]
  8. GERITOL [Concomitant]
  9. BENADRYL [Concomitant]
     Indication: PREMEDICATION
     Route: 042
  10. PEPCID [Concomitant]
     Indication: PREMEDICATION
     Route: 042
  11. ZOFRAN [Concomitant]
     Indication: PREMEDICATION
     Route: 048
  12. PRESERVISION AREDS [Concomitant]

REACTIONS (2)
  - ACCIDENTAL EXPOSURE [None]
  - NO ADVERSE EVENT [None]
